FAERS Safety Report 6310850-2 (Version None)
Quarter: 2009Q3

REPORT INFORMATION
  Report Type: 
  Country: None (occurrence: None)
  Receive Date: 20090812
  Receipt Date: 20090728
  Transmission Date: 20100115
  Serious: Yes (Death)
  Sender: FDA-Public Use
  Company Number: JPI-P-008097

PATIENT
  Age: 62 Year
  Sex: Male

DRUGS (10)
  1. XYREM [Suspect]
     Indication: SLEEP APNOEA SYNDROME
     Dosage: 4.5 GM (2.25 GM, 2 IN 1 D), ORAL
     Route: 048
     Dates: start: 20090623
  2. AZELASTINE (INHALANT) [Concomitant]
  3. FLUTICASONE (INHALANT) [Concomitant]
  4. FLUTICASONE AND SALMETEROL (INHALANT) [Concomitant]
  5. TIOTROPIUM BROMIDE (INHALANT) [Concomitant]
  6. TEMAZEPAM (PILL) [Concomitant]
  7. GABAPENTIN (PILL) [Concomitant]
  8. METOPROLOL (PILL) [Concomitant]
  9. DULOXETINE (PILL) [Concomitant]
  10. ALBUTEROL (INHALANT) [Concomitant]

REACTIONS (1)
  - DEATH [None]
